FAERS Safety Report 16711299 (Version 1)
Quarter: 2019Q3

REPORT INFORMATION
  Report Type: Spontaneous
  Country: US (occurrence: US)
  Receive Date: 20190816
  Receipt Date: 20190816
  Transmission Date: 20191004
  Serious: No
  Sender: FDA-Public Use
  Company Number: US-MAYNE PHARMA-2019MYN000567

PATIENT

DRUGS (5)
  1. IMVEXXY [Suspect]
     Active Substance: ESTRADIOL
     Dosage: 4 MCG, 2X/WEEK BEFORE BED
     Route: 067
     Dates: start: 20190502, end: 20190508
  2. DIAZEPAM. [Suspect]
     Active Substance: DIAZEPAM
     Indication: PRODUCT USED FOR UNKNOWN INDICATION
     Dosage: 15 MG, UNK
     Dates: end: 201904
  3. TRIMETHOPRIM. [Suspect]
     Active Substance: TRIMETHOPRIM
     Indication: PRODUCT USED FOR UNKNOWN INDICATION
     Dosage: UNK
     Dates: start: 201904
  4. DIAZEPAM. [Suspect]
     Active Substance: DIAZEPAM
     Dosage: 10 UNK, UNK
     Dates: start: 201904
  5. IMVEXXY [Suspect]
     Active Substance: ESTRADIOL
     Indication: BACTERIAL VAGINOSIS
     Dosage: 4 MCG, BEFORE BED
     Route: 067
     Dates: start: 20190418, end: 20190501

REACTIONS (2)
  - Kidney infection [Unknown]
  - Migraine [Recovered/Resolved]

NARRATIVE: CASE EVENT DATE: 201904
